FAERS Safety Report 7969732-2 (Version None)
Quarter: 2011Q4

REPORT INFORMATION
  Report Type: 
  Country: None (occurrence: None)
  Receive Date: 20111122
  Receipt Date: 20110824
  Transmission Date: 20120403
  Serious: No
  Sender: FDA-Public Use
  Company Number: PHEH2011US02641

PATIENT
  Age: 49 Year
  Sex: Female
  Weight: 59 kg

DRUGS (1)
  1. GILENYA [Suspect]
     Indication: MULTIPLE SCLEROSIS
     Dosage: 0.5 MG, QD, ORAL
     Route: 048
     Dates: start: 20110824

REACTIONS (7)
  - FLUSHING [None]
  - TINNITUS [None]
  - CHEST DISCOMFORT [None]
  - PERIPHERAL COLDNESS [None]
  - FEELING ABNORMAL [None]
  - PARAESTHESIA [None]
  - NERVOUSNESS [None]
